FAERS Safety Report 9917496 (Version 2)
Quarter: 2014Q1

REPORT INFORMATION
  Report Type: Spontaneous
  Country: US (occurrence: US)
  Receive Date: 20140221
  Receipt Date: 20140307
  Transmission Date: 20141002
  Serious: Yes (Other)
  Sender: FDA-Public Use
  Company Number: US-009507513-1402USA010021

PATIENT
  Sex: 0

DRUGS (2)
  1. REBETOL [Suspect]
     Indication: CHRONIC HEPATITIS C
     Dosage: DAILY
     Route: 048
  2. PEGINTERFERON ALFA-2A [Suspect]
     Indication: CHRONIC HEPATITIS C
     Dosage: 180 MICROGRAM, QW, 24 WEEKS (GENOTYPE2/3)OR 48 (GENOTYPE1/4)

REACTIONS (1)
  - Benign intracranial hypertension [Unknown]
